FAERS Safety Report 5981609-0 (Version None)
Quarter: 2008Q4

REPORT INFORMATION
  Report Type: 
  Country: None (occurrence: None)
  Receive Date: 20081205
  Receipt Date: 20081126
  Transmission Date: 20090506
  Serious: Yes (Other)
  Sender: FDA-Public Use
  Company Number: US-JNJFOC-20081106354

PATIENT
  Age: 47 Year
  Sex: Male

DRUGS (5)
  1. PREZISTA [Suspect]
     Indication: HIV INFECTION
     Route: 065
  2. ROSUVASTATIN [Suspect]
     Indication: DRUG USE FOR UNKNOWN INDICATION
     Route: 065
  3. RITONAVIR [Concomitant]
     Indication: HIV INFECTION
     Route: 048
  4. RALTEGRAVIR [Concomitant]
     Indication: HIV INFECTION
     Route: 048
  5. TRIZIVIR [Concomitant]
     Indication: HIV INFECTION
     Route: 048

REACTIONS (1)
  - RHABDOMYOLYSIS [None]
